FAERS Safety Report 9337734 (Version 1)
Quarter: 2013Q2

REPORT INFORMATION
  Report Type: Spontaneous
  Country: LT (occurrence: LT)
  Receive Date: 20130607
  Receipt Date: 20130607
  Transmission Date: 20140414
  Serious: Yes (Hospitalization, Other)
  Sender: FDA-Public Use
  Company Number: PHHY2013LT057321

PATIENT
  Age: 41 Year
  Sex: Male

DRUGS (4)
  1. CICLOSPORIN [Suspect]
     Indication: RENAL TRANSPLANT
     Dosage: 150 MG, UNK
  2. CICLOSPORIN [Suspect]
     Dosage: 75 MG, UNK
  3. AZATHIOPRINE [Suspect]
     Indication: RENAL TRANSPLANT
     Dosage: 50 MG, UNK
  4. METHYLPREDNISOLONE [Suspect]
     Indication: RENAL TRANSPLANT
     Dosage: 8 MG, UNK

REACTIONS (7)
  - Diffuse large B-cell lymphoma [Recovered/Resolved]
  - Decreased appetite [Unknown]
  - Hypoproteinaemia [Recovered/Resolved]
  - Asthenia [Unknown]
  - Weight decreased [Unknown]
  - Metastatic lymphoma [Recovered/Resolved]
  - Gastritis erosive [Recovered/Resolved]
